FAERS Safety Report 7367373-1 (Version None)
Quarter: 2011Q1

REPORT INFORMATION
  Report Type: 
  Country: None (occurrence: None)
  Receive Date: 20110311
  Receipt Date: 20110224
  Transmission Date: 20110831
  Serious: Yes (Hospitalization)
  Sender: FDA-Public Use
  Company Number: 2011SP008837

PATIENT
  Age: 59 Year
  Sex: Male
  Weight: 96 kg

DRUGS (6)
  1. ADVIL LIQUI-GELS [Concomitant]
  2. NASONEX [Concomitant]
  3. FLOVENT [Concomitant]
  4. ZADITOR [Concomitant]
  5. VENTOLIN [Concomitant]
  6. AERIUS (DESLORATADINE /01398501/) [Suspect]
     Indication: PRODUCT USED FOR UNKNOWN INDICATION
     Dosage: 5 MG;QD;PO
     Route: 048

REACTIONS (2)
  - NECK PAIN [None]
  - CHEST PAIN [None]
